FAERS Safety Report 24243786 (Version 1)
Quarter: 2024Q3

REPORT INFORMATION
  Report Type: Spontaneous
  Country: US (occurrence: None)
  Receive Date: 20240823
  Receipt Date: 20240823
  Transmission Date: 20241016
  Serious: Yes (Hospitalization, Other)
  Sender: EMMAUS LIFE SCIENCES
  Company Number: US-Emmaus Medical, Inc.-EMM202310-000282

PATIENT
  Age: 49 Year
  Sex: Male

DRUGS (2)
  1. ENDARI [Suspect]
     Active Substance: GLUTAMINE
     Indication: Sickle cell disease
     Dosage: UNKNOWN
     Route: 048
     Dates: start: 2018
  2. ENDARI [Suspect]
     Active Substance: GLUTAMINE
     Dosage: 15 G (3 PACKETS)
     Route: 048
     Dates: start: 20230927

REACTIONS (4)
  - Pain [Not Recovered/Not Resolved]
  - Hospitalisation [Unknown]
  - Emergency care [Unknown]
  - Product dose omission issue [Unknown]

NARRATIVE: CASE EVENT DATE: 20230801
